FAERS Safety Report 15942291 (Version 1)
Quarter: 2019Q1

REPORT INFORMATION
  Report Type: Spontaneous
  Country: US (occurrence: US)
  Receive Date: 20190211
  Receipt Date: 20190211
  Transmission Date: 20190417
  Serious: Yes (Congenital Anomaly, Other)
  Sender: FDA-Public Use
  Company Number: None

PATIENT
  Age: 45 Year
  Sex: Female
  Weight: 81 kg

DRUGS (3)
  1. ESTROGEN [Concomitant]
     Active Substance: ESTROGENS
  2. AIMOVIG [Suspect]
     Active Substance: ERENUMAB-AOOE
     Indication: MIGRAINE
     Dosage: SUBCUTANEOUS; TWICE A MONTH?          ?
     Route: 058
     Dates: start: 20190117, end: 20190209
  3. LEXAPRO [Concomitant]
     Active Substance: ESCITALOPRAM OXALATE

REACTIONS (5)
  - Arthralgia [None]
  - Influenza like illness [None]
  - Tinnitus [None]
  - Migraine [None]
  - Peripheral swelling [None]

NARRATIVE: CASE EVENT DATE: 20190208
